FAERS Safety Report 14668264 (Version 1)
Quarter: 2018Q1

REPORT INFORMATION
  Report Type: Spontaneous
  Country: US (occurrence: US)
  Receive Date: 20180320
  Receipt Date: 20180320
  Transmission Date: 20180509
  Serious: Yes (Life-Threatening, Hospitalization)
  Sender: FDA-Public Use
  Company Number: None

PATIENT
  Age: 77 Year
  Sex: Male

DRUGS (1)
  1. GLOBULIN, IMMUNE [Suspect]
     Active Substance: HUMAN IMMUNOGLOBULIN G
     Indication: HYPOGAMMAGLOBULINAEMIA
     Dosage: 40 GM OTHER IV
     Route: 042
     Dates: start: 20160930

REACTIONS (4)
  - Nasopharyngitis [None]
  - Chills [None]
  - Respiratory distress [None]
  - Wheezing [None]

NARRATIVE: CASE EVENT DATE: 20171220
